FAERS Safety Report 9595359 (Version 1)
Quarter: 2013Q4

REPORT INFORMATION
  Report Type: Report from Study
  Country: US (occurrence: US)
  Receive Date: 20131004
  Receipt Date: 20131004
  Transmission Date: 20140711
  Serious: Yes (Hospitalization)
  Sender: FDA-Public Use
  Company Number: US-ROCHE-1284387

PATIENT
  Age: 48 Year
  Sex: Male

DRUGS (15)
  1. XOLAIR [Suspect]
     Indication: CHRONIC OBSTRUCTIVE PULMONARY DISEASE
     Route: 065
  2. XOLAIR [Suspect]
     Indication: ASTHMA
  3. EXENATIDE [Suspect]
     Indication: PRODUCT USED FOR UNKNOWN INDICATION
     Dosage: BEFORE A MEAL
     Route: 065
  4. LISINOPRIL [Concomitant]
     Route: 065
  5. EPINEPHRINE [Concomitant]
     Dosage: 0.3/0.3ML
     Route: 065
  6. FENOFIBRATE [Concomitant]
     Route: 065
  7. HYDROCHLOROTHIAZIDE [Concomitant]
     Route: 065
  8. CHOLECALCIFEROL [Concomitant]
     Dosage: 2000 UNITS
     Route: 065
  9. OMEPRAZOLE [Concomitant]
     Route: 065
  10. ASPIRIN [Concomitant]
     Route: 065
  11. OMEGA 3 FATTY ACIDS [Concomitant]
     Dosage: WITH MEALS
     Route: 048
  12. GLYBURIDE [Concomitant]
     Dosage: 2 TABS WITH A MEAL
     Route: 048
  13. COMBIVENT [Concomitant]
     Dosage: ^18-103 MCG/ACT IN AERO^ ^2 PUFFS PRN^
     Route: 065
  14. FLOVENT [Concomitant]
     Dosage: ^220 MCG/ACT IN AERO^ ^2 PUFFS^
     Route: 065
  15. METFORMIN HYDROCHLORIDE [Concomitant]
     Route: 065

REACTIONS (3)
  - Oesophageal food impaction [Unknown]
  - Dyspnoea [Unknown]
  - Laboratory test abnormal [Unknown]
